FAERS Safety Report 9242557 (Version 1)
Quarter: 2013Q2

REPORT INFORMATION
  Report Type: Spontaneous
  Country: US (occurrence: US)
  Receive Date: 20130419
  Receipt Date: 20130419
  Transmission Date: 20140414
  Serious: No
  Sender: FDA-Public Use
  Company Number: US-PFIZER INC-2013122000

PATIENT
  Sex: Male

DRUGS (1)
  1. LYRICA [Suspect]
     Indication: PROCEDURAL PAIN
     Dosage: 75 MG, 2X/DAY

REACTIONS (2)
  - Musculoskeletal pain [Unknown]
  - Dysstasia [Unknown]
